FAERS Safety Report 15621465 (Version 3)
Quarter: 2019Q1

REPORT INFORMATION
  Report Type: Spontaneous
  Country: GB (occurrence: GB)
  Receive Date: 20181115
  Receipt Date: 20190128
  Transmission Date: 20190417
  Serious: Yes (Other)
  Sender: FDA-Public Use
  Company Number: GB-GLAXOSMITHKLINE-GB2018GSK207389

PATIENT
  Age: 23 Year
  Sex: Male

DRUGS (1)
  1. ZYBAN [Suspect]
     Active Substance: BUPROPION HYDROCHLORIDE
     Indication: SMOKING CESSATION THERAPY
     Dosage: 2 DF, 1D (TABLET)
     Route: 048
     Dates: start: 20010702, end: 20010715

REACTIONS (48)
  - Immunodeficiency [Not Recovered/Not Resolved]
  - Mental impairment [Not Recovered/Not Resolved]
  - Pain in extremity [Unknown]
  - Pyrexia [Unknown]
  - Pain of skin [Unknown]
  - Abdominal pain lower [Unknown]
  - Nausea [Unknown]
  - Tinnitus [Unknown]
  - Cerebrovascular accident [Recovered/Resolved]
  - Lower respiratory tract infection [Unknown]
  - Gait inability [Unknown]
  - Arthralgia [Unknown]
  - Pharyngeal erythema [Unknown]
  - Hypersensitivity [Unknown]
  - Mental disorder [Unknown]
  - Vomiting [Unknown]
  - Swelling face [Unknown]
  - Glossodynia [Unknown]
  - Musculoskeletal pain [Unknown]
  - Enlarged uvula [Unknown]
  - Pain [Unknown]
  - Tendon discomfort [Unknown]
  - Condition aggravated [Unknown]
  - Urticaria [Unknown]
  - Toothache [Unknown]
  - Lip pain [Unknown]
  - Dysuria [Unknown]
  - Arthropathy [Unknown]
  - Impaired quality of life [Unknown]
  - Joint swelling [Unknown]
  - Insomnia [Unknown]
  - Chest discomfort [Unknown]
  - Hypogammaglobulinaemia [Unknown]
  - Skin disorder [Unknown]
  - Swelling [Unknown]
  - Emotional distress [Unknown]
  - Ear infection [Unknown]
  - Seroconversion test [Unknown]
  - Deafness transitory [Unknown]
  - Blister [Unknown]
  - Ear swelling [Unknown]
  - Throat irritation [Unknown]
  - Rash vesicular [Unknown]
  - Erythema [Unknown]
  - Dyspepsia [Unknown]
  - Asthenia [Unknown]
  - Anxiety [Unknown]
  - Bronchial wall thickening [Unknown]

NARRATIVE: CASE EVENT DATE: 20010715
